FAERS Safety Report 8765600 (Version 2)
Quarter: 2012Q4

REPORT INFORMATION
  Report Type: 
  Country: CA (occurrence: CA)
  Receive Date: 20120903
  Receipt Date: 20121003
  Transmission Date: 20130627
  Serious: Yes (Other)
  Sender: FDA-Public Use
  Company Number: PHHY2012CA075672

PATIENT
  Sex: Female

DRUGS (2)
  1. CLOZARIL [Suspect]
     Indication: SCHIZOPHRENIA
     Dosage: 500 mg
     Route: 048
     Dates: start: 201007
  2. PHENERGAN [Concomitant]
     Dosage: 50 mg, HS PRN
     Route: 048

REACTIONS (2)
  - Infectious mononucleosis [Recovering/Resolving]
  - Hepatitis infectious mononucleosis [Recovering/Resolving]
